FAERS Safety Report 10222481 (Version 1)
Quarter: 2014Q2

REPORT INFORMATION
  Report Type: Spontaneous
  Country: US (occurrence: US)
  Receive Date: 20140606
  Receipt Date: 20140606
  Transmission Date: 20141212
  Serious: No
  Sender: FDA-Public Use
  Company Number: US-B.I. PHARMACEUTICALS,INC./RIDGEFIELD-2014-BI-23701BP

PATIENT
  Sex: Male

DRUGS (6)
  1. COMBIVENT [Suspect]
     Indication: CHRONIC OBSTRUCTIVE PULMONARY DISEASE
     Dosage: DOSE PER APPLICATION: 18 MCG / 103 MCG; DAILY DOSE: 108 MCG/412MCG
     Route: 055
     Dates: start: 2001, end: 2013
  2. PROAIR [Concomitant]
     Indication: CHRONIC OBSTRUCTIVE PULMONARY DISEASE
     Dosage: FORMULATION: INHALATION AEROSOL
     Route: 055
  3. ALBUTEROL [Concomitant]
     Indication: CHRONIC OBSTRUCTIVE PULMONARY DISEASE
     Dosage: FORMULATION: INHALATION SOLUTION
     Route: 055
  4. IPRATROPIUM [Concomitant]
     Indication: CHRONIC OBSTRUCTIVE PULMONARY DISEASE
     Dosage: FORMULATION: INHALATION SOLUTION
     Route: 055
  5. BUDESONIDE [Concomitant]
     Indication: CHRONIC OBSTRUCTIVE PULMONARY DISEASE
     Dosage: FORMULATION: INHALATION SOLUTION
     Route: 045
  6. FUROSEMIDE [Concomitant]
     Indication: LOCAL SWELLING
     Route: 048

REACTIONS (1)
  - Gout [Not Recovered/Not Resolved]
